FAERS Safety Report 7010226-9 (Version None)
Quarter: 2010Q3

REPORT INFORMATION
  Report Type: 
  Country: None (occurrence: None)
  Receive Date: 20100923
  Receipt Date: 20100913
  Transmission Date: 20110219
  Serious: Yes (Hospitalization)
  Sender: FDA-Public Use
  Company Number: GXKR2010CA10372

PATIENT
  Age: 36 Year
  Sex: Male

DRUGS (5)
  1. QUETIAPINE (NGX) [Suspect]
     Dosage: 400 MG/DAY
     Route: 065
  2. LAMOTRIGINE [Suspect]
     Dosage: 500 MG/DAY
  3. ZOPICLONE (NGX) [Suspect]
     Dosage: 75 MG/DAY
  4. LITHIUM CARBONATE [Concomitant]
     Dosage: 450 MG/DAY
  5. INSULIN [Concomitant]

REACTIONS (10)
  - ABDOMINAL DISCOMFORT [None]
  - CHOLESTASIS [None]
  - CHROMATURIA [None]
  - FAECES DISCOLOURED [None]
  - HEPATOSPLENOMEGALY [None]
  - HYPERCHOLESTEROLAEMIA [None]
  - HYPONATRAEMIA [None]
  - JAUNDICE [None]
  - MALAISE [None]
  - PRURITUS [None]
